FAERS Safety Report 7785012-2 (Version None)
Quarter: 2011Q3

REPORT INFORMATION
  Report Type: 
  Country: None (occurrence: None)
  Receive Date: 20110929
  Receipt Date: 20110919
  Transmission Date: 20111222
  Serious: Yes (Other)
  Sender: FDA-Public Use
  Company Number: JP-BRISTOL-MYERS SQUIBB COMPANY-16070203

PATIENT
  Age: 7 Decade
  Sex: Female

DRUGS (3)
  1. DOCETAXEL [Suspect]
     Indication: THYROID CANCER
     Route: 042
  2. CISPLATIN [Suspect]
     Indication: THYROID CANCER
     Dosage: DAYS 1-5
     Route: 042
  3. FLUOROURACIL [Suspect]
     Indication: THYROID CANCER
     Dosage: DAYS 1-5
     Route: 042

REACTIONS (3)
  - DIARRHOEA [None]
  - BONE MARROW FAILURE [None]
  - STOMATITIS [None]
